FAERS Safety Report 14957700 (Version 1)
Quarter: 2018Q2

REPORT INFORMATION
  Report Type: Spontaneous
  Country: US (occurrence: US)
  Receive Date: 20180531
  Receipt Date: 20180531
  Transmission Date: 20180711
  Serious: No
  Sender: FDA-Public Use
  Company Number: US-ARBOR PHARMACEUTICALS, LLC-US-2018ARB000306

PATIENT
  Sex: Male
  Weight: 102 kg

DRUGS (1)
  1. HORIZANT [Suspect]
     Active Substance: GABAPENTIN ENACARBIL
     Indication: DIABETIC NEUROPATHY
     Dosage: UNK

REACTIONS (1)
  - Drug ineffective for unapproved indication [Unknown]
